FAERS Safety Report 19195252 (Version 3)
Quarter: 2021Q3

REPORT INFORMATION
  Report Type: Spontaneous
  Country: US (occurrence: US)
  Receive Date: 20210429
  Receipt Date: 20210804
  Transmission Date: 20211014
  Serious: No
  Sender: FDA-Public Use
  Company Number: US-PFIZER INC-2021424258

PATIENT
  Age: 68 Year
  Sex: Female

DRUGS (1)
  1. IBRANCE [Suspect]
     Active Substance: PALBOCICLIB
     Dosage: 125 MG
     Dates: start: 20201207

REACTIONS (6)
  - Back disorder [Unknown]
  - Neoplasm progression [Unknown]
  - Illness [Unknown]
  - Malaise [Unknown]
  - Sciatica [Unknown]
  - Sciatic nerve injury [Unknown]
